FAERS Safety Report 9081236 (Version 2)
Quarter: 2013Q1

REPORT INFORMATION
  Report Type: Spontaneous
  Country: US (occurrence: US)
  Receive Date: 20130218
  Receipt Date: 20130329
  Transmission Date: 20140127
  Serious: Yes (Hospitalization, Other)
  Sender: FDA-Public Use
  Company Number: US-PFIZER INC-2013061419

PATIENT
  Age: 66 Year
  Sex: Female
  Weight: 81.63 kg

DRUGS (4)
  1. CELEBREX [Suspect]
     Indication: ARTHRITIS
     Dosage: 200 MG
     Route: 048
     Dates: start: 199912, end: 20130215
  2. CELEBREX [Suspect]
     Indication: SPONDYLITIS
  3. PLAVIX [Concomitant]
     Dosage: 75 MG DAILY
  4. CRESTOR [Concomitant]
     Indication: BLOOD CHOLESTEROL ABNORMAL
     Dosage: 75 MG DAILY

REACTIONS (1)
  - Acute myocardial infarction [Unknown]
